FAERS Safety Report 6200347-2 (Version None)
Quarter: 2009Q2

REPORT INFORMATION
  Report Type: 
  Country: None (occurrence: None)
  Receive Date: 20090522
  Receipt Date: 20090514
  Transmission Date: 20091009
  Serious: Yes (Hospitalization)
  Sender: FDA-Public Use
  Company Number: US-SANOFI-SYNTHELABO-F01200900476

PATIENT
  Sex: Female
  Weight: 60.9 kg

DRUGS (6)
  1. KYTRIL [Concomitant]
     Indication: PROPHYLAXIS OF NAUSEA AND VOMITING
     Route: 042
     Dates: start: 20090318
  2. DOCETAXEL [Suspect]
     Route: 041
     Dates: start: 20090506, end: 20090506
  3. FLUOROURACIL [Suspect]
     Route: 042
     Dates: start: 20090506, end: 20090506
  4. DECADRON [Concomitant]
     Indication: PREMEDICATION
     Route: 048
     Dates: start: 20090317
  5. OXALIPLATIN [Suspect]
     Indication: GASTRIC CANCER
     Route: 041
     Dates: start: 20090506, end: 20090506
  6. VICODIN [Concomitant]
     Indication: PAIN
     Dosage: 5/500 MG
     Route: 048
     Dates: start: 20090318

REACTIONS (1)
  - PELVIC ABSCESS [None]
